FAERS Safety Report 8988911 (Version 2)
Quarter: 2013Q1

REPORT INFORMATION
  Report Type: Spontaneous
  Country: BE (occurrence: BE)
  Receive Date: 20121228
  Receipt Date: 20130104
  Transmission Date: 20140127
  Serious: Yes (Death)
  Sender: FDA-Public Use
  Company Number: PHHY2012BE120415

PATIENT
  Age: 71 Year
  Sex: Female

DRUGS (2)
  1. ACLASTA [Suspect]
     Dosage: UNK
     Route: 042
     Dates: start: 201107
  2. L-THYROXINE [Concomitant]
     Dosage: 125 UG, UNK

REACTIONS (1)
  - Cardiac arrest [Fatal]
